FAERS Safety Report 10640343 (Version 1)
Quarter: 2014Q4

REPORT INFORMATION
  Report Type: Spontaneous
  Country: US (occurrence: None)
  Receive Date: 20141205
  Receipt Date: 20141205
  Transmission Date: 20150529
  Serious: Yes (Hospitalization)
  Sender: FDA-Public Use
  Company Number: None

PATIENT
  Age: 19 Year
  Sex: Male
  Weight: 133.4 kg

DRUGS (6)
  1. DAUNORUBICIN [Suspect]
     Active Substance: DAUNORUBICIN
     Dates: end: 20141119
  2. PREDNISONE. [Suspect]
     Active Substance: PREDNISONE
     Dosage: HELD DUE TO SEPSIS 11/29/14 AND RESTARTED 12/2/14?
  3. VINCRISTINE SULFATE. [Suspect]
     Active Substance: VINCRISTINE SULFATE
     Dates: end: 20141119
  4. METHOTREXATE [Suspect]
     Active Substance: METHOTREXATE
     Dates: end: 20141104
  5. ONCASPAR [Suspect]
     Active Substance: PEGASPARGASE
     Dates: end: 20141108
  6. CYTARABINE. [Suspect]
     Active Substance: CYTARABINE
     Dates: end: 20141105

REACTIONS (18)
  - Septic shock [None]
  - Diarrhoea [None]
  - Dizziness [None]
  - Cough [None]
  - Painful defaecation [None]
  - Syncope [None]
  - Oropharyngeal pain [None]
  - Wound [None]
  - Hyperbilirubinaemia [None]
  - Hepatic steatosis [None]
  - Cholestasis [None]
  - Pain in extremity [None]
  - Hyperhidrosis [None]
  - Hypotension [None]
  - Liver injury [None]
  - Hyperglycaemia [None]
  - Escherichia test positive [None]
  - Asthenia [None]

NARRATIVE: CASE EVENT DATE: 20141128
